FAERS Safety Report 16921401 (Version 4)
Quarter: 2021Q3

REPORT INFORMATION
  Report Type: Report from Study
  Country: US (occurrence: US)
  Receive Date: 20191015
  Receipt Date: 20210830
  Transmission Date: 20211014
  Serious: Yes (Other)
  Sender: FDA-Public Use
  Company Number: US-BAUSCH-BL-2019-057658

PATIENT
  Age: 65 Year
  Sex: Female
  Weight: 68.1 kg

DRUGS (2)
  1. SILIQ [Suspect]
     Active Substance: BRODALUMAB
     Indication: PSORIASIS
     Route: 058
     Dates: start: 20171024, end: 20190307
  2. CALCIPOTRIENE?BETAMETHASONE [Concomitant]
     Indication: PRODUCT USED FOR UNKNOWN INDICATION

REACTIONS (2)
  - Suicidal ideation [Not Recovered/Not Resolved]
  - Major depression [Unknown]

NARRATIVE: CASE EVENT DATE: 201906
